FAERS Safety Report 23213259 (Version 1)
Quarter: 2023Q4

REPORT INFORMATION
  Report Type: Spontaneous
  Country: HR (occurrence: HR)
  Receive Date: 20231121
  Receipt Date: 20231121
  Transmission Date: 20240110
  Serious: Yes (Other)
  Sender: FDA-Public Use
  Company Number: HR-SUN PHARMACEUTICAL INDUSTRIES LTD-2023R1-418863

PATIENT
  Age: 70 Year
  Sex: Male

DRUGS (1)
  1. FEXOFENADINE [Suspect]
     Active Substance: FEXOFENADINE HYDROCHLORIDE
     Indication: Urticaria
     Dosage: UNK
     Route: 065

REACTIONS (1)
  - Condition aggravated [Unknown]
